FAERS Safety Report 8340110-X (Version None)
Quarter: 2012Q2

REPORT INFORMATION
  Report Type: 
  Country: None (occurrence: None)
  Receive Date: 20120507
  Receipt Date: 20120430
  Transmission Date: 20120825
  Serious: No
  Sender: FDA-Public Use
  Company Number: US-B.I. PHARMACEUTICALS,INC./RIDGEFIELD-2012-BP-09788BP

PATIENT
  Age: 69 Year
  Sex: Female

DRUGS (3)
  1. ACIPHEX [Concomitant]
     Indication: GASTROOESOPHAGEAL REFLUX DISEASE
  2. ACIPHEX [Concomitant]
     Indication: GASTROINTESTINAL DISORDER
  3. ZANTAC 150 [Suspect]
     Indication: GASTROOESOPHAGEAL REFLUX DISEASE
     Route: 048
     Dates: start: 20120429, end: 20120429

REACTIONS (4)
  - HYPOAESTHESIA ORAL [None]
  - ABDOMINAL PAIN UPPER [None]
  - TONGUE DISORDER [None]
  - FAECES DISCOLOURED [None]
